FAERS Safety Report 16208076 (Version 2)
Quarter: 2019Q2

REPORT INFORMATION
  Report Type: Spontaneous
  Country: US (occurrence: US)
  Receive Date: 20190417
  Receipt Date: 20190502
  Transmission Date: 20190711
  Serious: No
  Sender: FDA-Public Use
  Company Number: US-JNJFOC-20190400314

PATIENT

DRUGS (2)
  1. SUDAFED 24 HOUR [Suspect]
     Active Substance: PSEUDOEPHEDRINE HYDROCHLORIDE
     Indication: MULTIPLE ALLERGIES
     Dosage: FREQUENTLY
     Route: 065
  2. SUDAFED 24 HOUR [Suspect]
     Active Substance: PSEUDOEPHEDRINE HYDROCHLORIDE
     Route: 065

REACTIONS (8)
  - Dry eye [Unknown]
  - Heart rate increased [Unknown]
  - Blood pressure increased [Unknown]
  - Dizziness [Unknown]
  - Tachycardia [Unknown]
  - Decreased appetite [Unknown]
  - Dehydration [Unknown]
  - Insomnia [Unknown]
